FAERS Safety Report 6095921-0 (Version None)
Quarter: 2009Q1

REPORT INFORMATION
  Report Type: 
  Country: None (occurrence: None)
  Receive Date: 20090227
  Receipt Date: 20080716
  Transmission Date: 20090719
  Serious: No
  Sender: FDA-Public Use
  Company Number: A0737967A

PATIENT
  Age: 20 Year
  Sex: Female

DRUGS (4)
  1. LAMICTAL [Suspect]
     Indication: BIPOLAR DISORDER
     Dosage: 150MG PER DAY
     Route: 048
     Dates: start: 20080424, end: 20080709
  2. BENADRYL [Suspect]
     Route: 065
     Dates: start: 20080708
  3. CELEXA [Concomitant]
  4. AMBIEN [Concomitant]

REACTIONS (8)
  - DIZZINESS [None]
  - EYE ROLLING [None]
  - MUSCLE TWITCHING [None]
  - NAUSEA [None]
  - PYREXIA [None]
  - RASH [None]
  - SOCIAL AVOIDANT BEHAVIOUR [None]
  - VISION BLURRED [None]
